FAERS Safety Report 8862681 (Version 4)
Quarter: 2013Q1

REPORT INFORMATION
  Report Type: Spontaneous
  Country: US (occurrence: US)
  Receive Date: 20121026
  Receipt Date: 20130102
  Transmission Date: 20140127
  Serious: No
  Sender: FDA-Public Use
  Company Number: US-PFIZER INC-2012265787

PATIENT
  Age: 72 Year
  Sex: Male
  Weight: 71.66 kg

DRUGS (6)
  1. SUTENT [Suspect]
     Indication: RENAL CANCER
     Dosage: 25 MG, 1X/DAY
     Route: 048
     Dates: start: 20120929, end: 20121017
  2. SUTENT [Suspect]
     Dosage: 25 MG, 1X/DAY
     Route: 048
     Dates: start: 20121029, end: 20121202
  3. COUMADIN [Concomitant]
     Indication: THROMBOSIS
     Dosage: UNK
  4. COUMADIN [Concomitant]
     Indication: ANTICOAGULANT THERAPY
  5. LOVENOX [Concomitant]
  6. SIMVASTATIN [Concomitant]
     Indication: BLOOD CHOLESTEROL INCREASED
     Dosage: UNK

REACTIONS (4)
  - Disease progression [Unknown]
  - Renal cell carcinoma [Unknown]
  - White blood cell count decreased [Unknown]
  - Platelet count decreased [Unknown]
